FAERS Safety Report 10794318 (Version 3)
Quarter: 2015Q1

REPORT INFORMATION
  Report Type: Spontaneous
  Country: SE (occurrence: SE)
  Receive Date: 20150213
  Receipt Date: 20150305
  Transmission Date: 20150721
  Serious: Yes (Other)
  Sender: FDA-Public Use
  Company Number: PHHY2015SE014307

PATIENT
  Age: 65 Year
  Sex: Female
  Weight: 52.3 kg

DRUGS (5)
  1. DONEPEZIL ACCORD [Suspect]
     Active Substance: DONEPEZIL
     Dosage: 10 MG, UNK
     Route: 065
  2. DONEPEZIL ACCORD [Suspect]
     Active Substance: DONEPEZIL
     Dosage: 5 MG, UNK
     Route: 065
  3. EXELON PATCH [Suspect]
     Active Substance: RIVASTIGMINE
     Indication: DEMENTIA ALZHEIMER^S TYPE
  4. DONEPEZIL ACCORD [Suspect]
     Active Substance: DONEPEZIL
     Indication: PRODUCT USED FOR UNKNOWN INDICATION
     Dosage: 5 MG, UNK
     Route: 065
  5. EXELON PATCH [Suspect]
     Active Substance: RIVASTIGMINE
     Indication: MEMORY IMPAIRMENT
     Dosage: 9.5 MG, QD
     Route: 062
     Dates: start: 20150129, end: 20150131

REACTIONS (29)
  - Dysstasia [Recovered/Resolved]
  - Respiratory disorder [Recovering/Resolving]
  - Application site rash [Recovered/Resolved]
  - Chest pain [Unknown]
  - Hypotension [Unknown]
  - Gait disturbance [Recovering/Resolving]
  - Nausea [Recovering/Resolving]
  - Pain [Recovering/Resolving]
  - Eructation [Recovering/Resolving]
  - Feeling abnormal [Recovering/Resolving]
  - Faecal incontinence [Recovered/Resolved]
  - Appetite disorder [Recovering/Resolving]
  - Abdominal pain upper [Unknown]
  - Drug administration error [Unknown]
  - Abdominal discomfort [Unknown]
  - Dizziness [Recovering/Resolving]
  - Dyspnoea [Recovering/Resolving]
  - Headache [Recovering/Resolving]
  - Vertigo [Recovering/Resolving]
  - Hiccups [Recovering/Resolving]
  - Toothache [Recovering/Resolving]
  - Chest discomfort [Unknown]
  - Eye disorder [Recovered/Resolved]
  - Syncope [Recovered/Resolved]
  - Application site eczema [Recovered/Resolved]
  - Malaise [Recovering/Resolving]
  - Gastric disorder [Recovering/Resolving]
  - Tremor [Recovering/Resolving]
  - Hallucination [Unknown]

NARRATIVE: CASE EVENT DATE: 20150131
